FAERS Safety Report 4933960-0 (Version None)
Quarter: 2006Q1

REPORT INFORMATION
  Report Type: 
  Country: None (occurrence: None)
  Receive Date: 20060303
  Receipt Date: 20060221
  Transmission Date: 20060701
  Serious: Yes (Hospitalization)
  Sender: FDA-Public Use
  Company Number: 2006-00660

PATIENT
  Age: 28 Year
  Sex: Female

DRUGS (4)
  1. TRELSTAR DEPOT [Suspect]
     Indication: IN VITRO FERTILISATION
     Dosage: 0.1 MG, 1X[SIC] DAILY, SUBCUTANEOUS
     Route: 058
     Dates: start: 20000302
  2. TRELSTAR DEPOT [Suspect]
     Indication: IN VITRO FERTILISATION
     Dosage: 0.1 MG, 1X[SIC] DAILY, SUBCUTANEOUS
     Route: 058
     Dates: start: 20000629
  3. MENOTROPINS [Suspect]
     Indication: IN VITRO FERTILISATION
     Dosage: 3 75 IU AMPOULES/DAY, 28 75 IU AMPULES
     Dates: start: 20000714, end: 20000723
  4. MENOTROPINS [Suspect]
     Indication: IN VITRO FERTILISATION
     Dosage: 3 75 IU AMPOULES/DAY, 28 75 IU AMPULES
     Dates: start: 20000324

REACTIONS (2)
  - DRUG EXPOSURE DURING PREGNANCY [None]
  - OVARIAN HYPERSTIMULATION SYNDROME [None]
